FAERS Safety Report 18376929 (Version 1)
Quarter: 2020Q4

REPORT INFORMATION
  Report Type: Spontaneous
  Country: GB (occurrence: GB)
  Receive Date: 20201013
  Receipt Date: 20201013
  Transmission Date: 20210114
  Serious: Yes (Hospitalization)
  Sender: FDA-Public Use
  Company Number: GB-DEXPHARM-20200909

PATIENT
  Age: 23 Year

DRUGS (4)
  1. OMEPRAZOLE. [Suspect]
     Active Substance: OMEPRAZOLE
     Route: 048
  2. PANTOPRAZOLE [Interacting]
     Active Substance: PANTOPRAZOLE
     Dosage: AS NECESSARY
  3. AMOXICILLIN. [Concomitant]
     Active Substance: AMOXICILLIN
     Dosage: FOR 1 WEEK
     Route: 048
     Dates: start: 20200813
  4. NAPROXEN. [Interacting]
     Active Substance: NAPROXEN
     Route: 048
     Dates: start: 20200324

REACTIONS (2)
  - Acute kidney injury [Unknown]
  - Drug interaction [Unknown]
